FAERS Safety Report 8126952-4 (Version None)
Quarter: 2011Q4

REPORT INFORMATION
  Report Type: 
  Country: None (occurrence: None)
  Receive Date: 20111227
  Receipt Date: 20110909
  Transmission Date: 20120403
  Serious: No
  Sender: FDA-Public Use
  Company Number: PHEH2011US03813

PATIENT
  Age: 61 Year
  Sex: Male

DRUGS (1)
  1. GILENYA [Suspect]
     Indication: MULTIPLE SCLEROSIS
     Dosage: 0.5MG, DAILY, ORAL
     Route: 048
     Dates: start: 20110401

REACTIONS (3)
  - ASTHENOPIA [None]
  - COLD SWEAT [None]
  - HYPERTENSION [None]
